FAERS Safety Report 23477167 (Version 1)
Quarter: 2024Q1

REPORT INFORMATION
  Report Type: Report from Study
  Country: US (occurrence: US)
  Receive Date: 20240204
  Receipt Date: 20240204
  Transmission Date: 20240409
  Serious: No
  Sender: FDA-Public Use
  Company Number: US-EXELIXIS-CABO-23065230

PATIENT
  Age: 61 Year
  Sex: Female

DRUGS (4)
  1. CABOMETYX [Suspect]
     Active Substance: CABOZANTINIB S-MALATE
     Indication: Renal cancer
     Dosage: 40 MG, QD
     Route: 048
     Dates: start: 20230523, end: 20230621
  2. CABOMETYX [Suspect]
     Active Substance: CABOZANTINIB S-MALATE
     Indication: Metastases to bone
     Dosage: 20 MG, QD
     Dates: start: 20230712
  3. OPDIVO [Suspect]
     Active Substance: NIVOLUMAB
     Indication: Renal cancer
     Dosage: 480 MG, Q4WEEKS
     Dates: start: 20230523, end: 20230621
  4. OPDIVO [Suspect]
     Active Substance: NIVOLUMAB
     Indication: Metastases to bone
     Dosage: 480 MG, Q4WEEKS
     Dates: start: 20230712

REACTIONS (3)
  - Tongue erythema [Unknown]
  - Glossodynia [Unknown]
  - Hepatic enzyme increased [Recovered/Resolved]

NARRATIVE: CASE EVENT DATE: 20230621
